FAERS Safety Report 10171910 (Version 1)
Quarter: 2014Q2

REPORT INFORMATION
  Report Type: Spontaneous
  Country: BR (occurrence: BR)
  Receive Date: 20140515
  Receipt Date: 20140515
  Transmission Date: 20141212
  Serious: Yes (Other)
  Sender: FDA-Public Use
  Company Number: BR-PFIZER INC-2014126358

PATIENT
  Age: 59 Year
  Sex: Female
  Weight: 64 kg

DRUGS (5)
  1. LIPITOR [Suspect]
     Indication: BLOOD CHOLESTEROL INCREASED
     Dosage: 40 MG (1 TABLET), DAILY
     Route: 048
     Dates: start: 20130913, end: 201402
  2. LITOCIT [Concomitant]
     Indication: RENAL DISORDER
     Dosage: 1 DF (1 TABLET), 2X/DAY (EVERY 12 HOURS)
  3. LOSARTAN [Concomitant]
     Indication: HYPERTENSION
     Dosage: 2 DF, DAILY
  4. OMEPRAZOLE [Concomitant]
     Indication: GASTRIC DISORDER
  5. PURAN T4 [Concomitant]
     Indication: THYROID DISORDER
     Dosage: 1 DF, DAILY

REACTIONS (1)
  - Renal disorder [Unknown]
